FAERS Safety Report 11898048 (Version 1)
Quarter: 2016Q1

REPORT INFORMATION
  Report Type: Spontaneous
  Country: US (occurrence: US)
  Receive Date: 20160108
  Receipt Date: 20160108
  Transmission Date: 20160526
  Serious: No
  Sender: FDA-Public Use
  Company Number: US-DRREDDYS-USA/USA/15/0052358

PATIENT
  Age: 34 Year
  Sex: Female

DRUGS (2)
  1. CONTROL STEP 1 21MG [Suspect]
     Active Substance: NICOTINE
     Indication: SMOKING CESSATION THERAPY
     Dosage: 1 DF, UNK
     Route: 062
     Dates: start: 20141211, end: 20141211
  2. CONTROL STEP 2 14MG [Suspect]
     Active Substance: NICOTINE
     Indication: SMOKING CESSATION THERAPY
     Dosage: 1 PATCH, STOPPED AFTER 24 HRS
     Route: 062
     Dates: start: 20141216, end: 20141217

REACTIONS (1)
  - Exposure during breast feeding [Unknown]
